FAERS Safety Report 8582434 (Version 4)
Quarter: 2012Q4

REPORT INFORMATION
  Report Type: 
  Country: US (occurrence: US)
  Receive Date: 20120529
  Receipt Date: 20121113
  Transmission Date: 20130627
  Serious: Yes (Hospitalization, Other)
  Sender: FDA-Public Use
  Company Number: PHHY2011US30369

PATIENT
  Age: 62 Year
  Sex: Female

DRUGS (7)
  1. GLEEVEC [Suspect]
     Indication: CHRONIC MYELOID LEUKAEMIA
     Dosage: 400 mg, daily
     Route: 048
     Dates: start: 20110311
  2. GLEEVEC [Suspect]
     Dosage: 400 mg, daily
     Dates: start: 201104
  3. TENORMINE [Concomitant]
     Dosage: 75 mg, (50mg AM/ 25 mg PM)
     Route: 048
  4. SYNTHROID [Concomitant]
     Dosage: 112 ug, UNK
     Route: 048
  5. KCL [Concomitant]
     Dosage: 20 MEq, UNK
     Route: 048
  6. ALLOPURINOL [Concomitant]
     Dosage: 300 mg, UNK
     Route: 048
  7. NOREL [Concomitant]

REACTIONS (8)
  - Atrial fibrillation [Recovered/Resolved]
  - Cardiac disorder [Unknown]
  - Trigger finger [Unknown]
  - Muscle spasms [Recovered/Resolved]
  - Bone pain [Unknown]
  - Blood pressure increased [Unknown]
  - Rash macular [Unknown]
  - Contusion [Unknown]
